FAERS Safety Report 23635548 (Version 1)
Quarter: 2024Q1

REPORT INFORMATION
  Report Type: Report from Study
  Country: US (occurrence: US)
  Receive Date: 20240315
  Receipt Date: 20240315
  Transmission Date: 20240410
  Serious: Yes (Other)
  Sender: FDA-Public Use
  Company Number: US-JNJFOC-20240327663

PATIENT

DRUGS (1)
  1. REMICADE [Suspect]
     Active Substance: INFLIXIMAB
     Indication: Pyoderma
     Route: 041

REACTIONS (4)
  - Colon cancer [Unknown]
  - Hepatic function abnormal [Unknown]
  - Drug ineffective [Unknown]
  - Off label use [Unknown]
